FAERS Safety Report 10234702 (Version 1)
Quarter: 2014Q2

REPORT INFORMATION
  Report Type: Spontaneous
  Country: FR (occurrence: FR)
  Receive Date: 20140613
  Receipt Date: 20140613
  Transmission Date: 20141212
  Serious: Yes (Other)
  Sender: FDA-Public Use
  Company Number: FR-009507513-1406FRA005098

PATIENT
  Age: 60 Year
  Sex: Male

DRUGS (1)
  1. EZETROL [Suspect]
     Route: 048

REACTIONS (2)
  - Cerebrovascular accident [Unknown]
  - Condition aggravated [Unknown]
